FAERS Safety Report 11047300 (Version 1)
Quarter: 2015Q2

REPORT INFORMATION
  Report Type: Spontaneous
  Country: PL (occurrence: None)
  Receive Date: 20150416
  Receipt Date: 20150416
  Transmission Date: 20150821
  Serious: Yes (Life-Threatening)
  Sender: FDA-Public Use
  Company Number: 2015DEPPL00645

PATIENT
  Age: 24 Year
  Sex: Female
  Weight: 41 kg

DRUGS (9)
  1. DEPOCYT(E) (CYTARABINE) LIPOSOME INJECTABLE SUSPENSION [Suspect]
     Active Substance: CYTARABINE
     Indication: PROPHYLAXIS
     Route: 037
     Dates: start: 20141103, end: 20150217
  2. DAUNORUBICIN [Concomitant]
     Active Substance: DAUNORUBICIN
  3. VINCRISTINE (VINCRISTINE SULFATE) [Concomitant]
     Active Substance: VINCRISTINE SULFATE
  4. ARA-C [Concomitant]
     Active Substance: CYTARABINE
  5. CYCLOPHOSPHAMIDE. [Concomitant]
     Active Substance: CYCLOPHOSPHAMIDE
  6. DEPOCYT(E) (CYTARABINE) LIPOSOME INJECTABLE SUSPENSION [Suspect]
     Active Substance: CYTARABINE
     Indication: ACUTE LYMPHOCYTIC LEUKAEMIA
     Route: 037
     Dates: start: 20141103, end: 20150217
  7. DEPOCYT(E) (CYTARABINE) LIPOSOME INJECTABLE SUSPENSION [Suspect]
     Active Substance: CYTARABINE
     Indication: NERVOUS SYSTEM DISORDER
     Route: 037
     Dates: start: 20141103, end: 20150217
  8. METHOTREXATE (METHOTREXATE SODIUM) [Concomitant]
     Active Substance: METHOTREXATE SODIUM
  9. ETOPOSIDE (ETOPOSIDE PHOSPHATE) [Concomitant]
     Active Substance: ETOPOSIDE

REACTIONS (5)
  - Vomiting [None]
  - Headache [None]
  - Seizure [None]
  - Diplopia [None]
  - Loss of consciousness [None]

NARRATIVE: CASE EVENT DATE: 20150324
